FAERS Safety Report 5852275-X (Version None)
Quarter: 2008Q3

REPORT INFORMATION
  Report Type: 
  Country: None (occurrence: None)
  Receive Date: 20080819
  Receipt Date: 20080804
  Transmission Date: 20090109
  Serious: Yes (Death, Other)
  Sender: FDA-Public Use
  Company Number: KADN20080319

PATIENT
  Age: 16 Year
  Sex: Male

DRUGS (3)
  1. MORPHINE [Suspect]
     Dates: end: 20060101
  2. OXYCODONE HCL [Suspect]
  3. MEPROBAMATE [Suspect]
     Dates: end: 20060101

REACTIONS (2)
  - DRUG ABUSE [None]
  - MULTIPLE DRUG OVERDOSE ACCIDENTAL [None]
